FAERS Safety Report 4412741-0 (Version None)
Quarter: 2004Q2

REPORT INFORMATION
  Report Type: 
  Country: None (occurrence: None)
  Receive Date: 20040630
  Receipt Date: 20040514
  Transmission Date: 20050107
  Serious: No
  Sender: FDA-Public Use
  Company Number: 04P-163-0260919-00

PATIENT
  Sex: Female
  Weight: 110.2241 kg

DRUGS (9)
  1. HUMIRA [Suspect]
     Indication: RHEUMATOID ARTHRITIS
     Dosage: 40 MG, 1 IN 2 WK, SUBCUTANEOUS
     Route: 058
     Dates: start: 20030401, end: 20031001
  2. BACTRIM [Concomitant]
  3. DILTIAZEM HYDROCHLORIDE [Concomitant]
  4. METOPROLOL TARTRATE [Concomitant]
  5. NITROGYCERIN [Concomitant]
  6. POTASSIUM [Concomitant]
  7. ZOCOR [Concomitant]
  8. ASPIRIN [Concomitant]
  9. ALORCET [Concomitant]

REACTIONS (1)
  - DRUG INEFFECTIVE [None]
